FAERS Safety Report 8036030 (Version 3)
Quarter: 2012Q4

REPORT INFORMATION
  Report Type: 
  Country: US (occurrence: US)
  Receive Date: 20110715
  Receipt Date: 20120828
  Transmission Date: 20130627
  Serious: Yes (Other)
  Sender: FDA-Public Use
  Company Number: US-ASTRAZENECA-2011SE40532

PATIENT
  Age: 61 Year
  Sex: Male

DRUGS (2)
  1. TOPROL XL [Suspect]
     Route: 048
  2. TOPROL XL [Suspect]
     Route: 048

REACTIONS (5)
  - Intracranial aneurysm [Unknown]
  - Diverticulitis [Unknown]
  - Malaise [Unknown]
  - Impaired work ability [Unknown]
  - Intentional drug misuse [Unknown]
